FAERS Safety Report 5372758-9 (Version None)
Quarter: 2007Q2

REPORT INFORMATION
  Report Type: 
  Country: None (occurrence: None)
  Receive Date: 20070621
  Receipt Date: 20060705
  Transmission Date: 20071010
  Serious: No
  Sender: FDA-Public Use
  Company Number: 06H-163-0308626-00

PATIENT
  Sex: Female
  Weight: 54.4 kg

DRUGS (2)
  1. HEPARIN SODIUM INJECTION [Suspect]
     Indication: DEEP VEIN THROMBOSIS
     Dosage: 760ML/HR, OVER 39MIN, CONTINUOUS, INTRAVENOUS
     Route: 042
     Dates: start: 20060529, end: 20060529
  2. HEPARIN [Concomitant]

REACTIONS (3)
  - ACTIVATED PARTIAL THROMBOPLASTIN TIME PROLONGED [None]
  - MEDICATION ERROR [None]
  - OVERDOSE [None]
